FAERS Safety Report 23477287 (Version 1)
Quarter: 2024Q1

REPORT INFORMATION
  Report Type: Report from Study
  Country: US (occurrence: US)
  Receive Date: 20240204
  Receipt Date: 20240204
  Transmission Date: 20240409
  Serious: No
  Sender: FDA-Public Use
  Company Number: US-EXELIXIS-CABO-23067054

PATIENT
  Age: 49 Year
  Sex: Female

DRUGS (1)
  1. CABOMETYX [Suspect]
     Active Substance: CABOZANTINIB S-MALATE
     Indication: Renal cancer
     Dosage: 40 MG, QD
     Route: 048
     Dates: start: 20230415

REACTIONS (4)
  - Thirst [Unknown]
  - Blood magnesium decreased [Unknown]
  - Gastrointestinal motility disorder [Unknown]
  - Nausea [Unknown]

NARRATIVE: CASE EVENT DATE: 20230801
